FAERS Safety Report 12171439 (Version 2)
Quarter: 2016Q2

REPORT INFORMATION
  Report Type: Spontaneous
  Country: DE (occurrence: DE)
  Receive Date: 20160311
  Receipt Date: 20160406
  Transmission Date: 20160815
  Serious: Yes (Other)
  Sender: FDA-Public Use
  Company Number: DE-JNJFOC-20151118079

PATIENT
  Sex: Female
  Weight: 65 kg

DRUGS (5)
  1. NORVIR [Concomitant]
     Active Substance: RITONAVIR
     Indication: PATHOGEN RESISTANCE
     Dosage: 100
     Route: 048
     Dates: start: 20151029
  2. INTELENCE [Suspect]
     Active Substance: ETRAVIRINE
     Indication: PATHOGEN RESISTANCE
     Route: 048
     Dates: start: 20151029
  3. TIVICAY [Concomitant]
     Active Substance: DOLUTEGRAVIR SODIUM
     Indication: PATHOGEN RESISTANCE
     Dosage: 50
     Route: 065
     Dates: start: 20151029
  4. DARUNAVIR [Suspect]
     Active Substance: DARUNAVIR
     Indication: PATHOGEN RESISTANCE
     Route: 048
     Dates: start: 20151029
  5. STRIBILD [Concomitant]
     Active Substance: COBICISTAT\ELVITEGRAVIR\EMTRICITABINE\TENOFOVIR DISOPROXIL FUMARATE
     Indication: PATHOGEN RESISTANCE
     Route: 065
     Dates: end: 20151029

REACTIONS (3)
  - Exposure during pregnancy [Recovered/Resolved]
  - Premature labour [Recovered/Resolved]
  - Hypothyroidism [Unknown]
